FAERS Safety Report 19898693 (Version 1)
Quarter: 2021Q3

REPORT INFORMATION
  Report Type: Spontaneous
  Country: US (occurrence: US)
  Receive Date: 20210930
  Receipt Date: 20210930
  Transmission Date: 20211014
  Serious: No
  Sender: FDA-Public Use
  Company Number: US-BION-009963

PATIENT

DRUGS (1)
  1. LOPERAMIDE HCL 2 MG SOFTGELS? 24 CT [Suspect]
     Active Substance: LOPERAMIDE HYDROCHLORIDE
     Indication: PRODUCT USED FOR UNKNOWN INDICATION
     Dosage: STRENGTH: 2 MG

REACTIONS (1)
  - Therapeutic product effect incomplete [Not Recovered/Not Resolved]
